FAERS Safety Report 10357072 (Version 1)
Quarter: 2014Q3

REPORT INFORMATION
  Report Type: Spontaneous
  Country: US (occurrence: None)
  Receive Date: 20140730
  Receipt Date: 20140730
  Transmission Date: 20150326
  Serious: Yes (Life-Threatening, Hospitalization, Disabling)
  Sender: FDA-Public Use
  Company Number: None

PATIENT
  Age: 79 Year
  Sex: Female
  Weight: 90.27 kg

DRUGS (14)
  1. PANTOPRAZOLE [Concomitant]
     Active Substance: PANTOPRAZOLE SODIUM
  2. CLONIDINE. [Concomitant]
     Active Substance: CLONIDINE
  3. ISASORBIDE MONONITRATE [Concomitant]
  4. VITAMIN B COMPLEX [Concomitant]
     Active Substance: CYANOCOBALAMIN\DEXPANTHENOL\NIACINAMIDE\PYRIDOXINE HYDROCHLORIDE\RIBOFLAVIN 5^-PHOSPHATE SODIUM\THIAMINE HYDROCHLORIDE\VITAMIN B COMPLEX
  5. HYDRALINE [Concomitant]
  6. INSULNE LEVEMIR FLEX FIN [Concomitant]
  7. OMEPRAZLE [Concomitant]
  8. SELENIUM [Suspect]
     Active Substance: SELENIUM
  9. LISINOPRIL. [Suspect]
     Active Substance: LISINOPRIL
     Route: 048
     Dates: end: 20140605
  10. SAZAGLIPTIN (OPGLAZ [Concomitant]
  11. CQ10 [Suspect]
     Active Substance: UBIDECARENONE
  12. AMLODIPINE [Concomitant]
     Active Substance: AMLODIPINE BESYLATE
  13. OMEPRAZLE [Concomitant]
  14. VITAMINS A-C-E-D3 [Concomitant]

REACTIONS (3)
  - Acute respiratory failure [None]
  - Angioedema [None]
  - Hypersensitivity [None]

NARRATIVE: CASE EVENT DATE: 20140605
